FAERS Safety Report 5345516-9 (Version None)
Quarter: 2007Q2

REPORT INFORMATION
  Report Type: 
  Country: None (occurrence: None)
  Receive Date: 20070605
  Receipt Date: 20070525
  Transmission Date: 20071010
  Serious: No
  Sender: FDA-Public Use
  Company Number: GBWYE491318APR07

PATIENT
  Sex: Female
  Weight: 58.11 kg

DRUGS (4)
  1. EFFEXOR XR [Suspect]
     Indication: DEPRESSION
     Dates: start: 20070218
  2. OMEPRAZOLE [Concomitant]
  3. PANADOL [Concomitant]
     Dosage: PRN
  4. DIAZEPAM [Concomitant]
     Dosage: 2MG PRN

REACTIONS (1)
  - NAUSEA [None]
